FAERS Safety Report 9049865 (Version 1)
Quarter: 2013Q1

REPORT INFORMATION
  Report Type: Spontaneous
  Country: US (occurrence: US)
  Receive Date: 20130205
  Receipt Date: 20130205
  Transmission Date: 20140127
  Serious: No
  Sender: FDA-Public Use
  Company Number: US-PFIZER INC-2013043736

PATIENT
  Age: 51 Year
  Sex: Female
  Weight: 64.4 kg

DRUGS (18)
  1. METHYLPREDNISOLONE [Suspect]
     Indication: MULTIPLE SCLEROSIS
     Dosage: UNK
  2. METHYLPREDNISOLONE [Suspect]
     Dosage: 1 G, DAILY
     Dates: start: 20130109, end: 20130111
  3. SINGULAIR [Concomitant]
     Indication: ASTHMA
     Dosage: 10 MG, DAILY AT NIGHT
  4. PULMICORT FLEXHALER [Concomitant]
     Indication: ASTHMA
     Dosage: 180 MCG TWO PUFFS TWO TIMES DAY
  5. TENORMIN [Concomitant]
     Indication: MITRAL VALVE PROLAPSE
     Dosage: 25 MG,DAILY
  6. PAXIL [Concomitant]
     Indication: DEPRESSION
     Dosage: 40 MG, DAILY
     Route: 048
  7. ABILIFY [Concomitant]
     Indication: DEPRESSION
     Dosage: 2 MG ONE TABLET DAILY
     Route: 048
  8. ZOVIRAX [Concomitant]
     Indication: HERPES SIMPLEX
     Dosage: 200 MG ONE TABLET DAILY
     Route: 048
  9. ACTIGALL [Concomitant]
     Indication: CHOLELITHIASIS
     Dosage: 300 MG ONE CAPSULE DAILY
     Route: 048
  10. CITRACAL [Concomitant]
     Indication: SUPPLEMENTATION THERAPY
     Dosage: UNK
  11. VITAMIN D3 [Concomitant]
     Dosage: UNK
  12. BACLOFEN [Concomitant]
     Indication: MULTIPLE SCLEROSIS
     Dosage: 10 MG, DAILY
  13. BACLOFEN [Concomitant]
     Indication: MUSCLE SPASTICITY
  14. KLONOPIN [Concomitant]
     Indication: SLEEP DISORDER
     Dosage: 2 MG, DAILY AT NIGHT
  15. COPAXONE [Concomitant]
     Indication: MULTIPLE SCLEROSIS
     Dosage: 150 MG, DAILY
     Route: 058
  16. VITAMIN B12 [Concomitant]
     Dosage: 1000 UG, MONTHLY
     Route: 058
  17. NUVIGIL [Concomitant]
     Indication: MULTIPLE SCLEROSIS
     Dosage: 250 MG ONE TABLET DAILY
     Route: 048
  18. NUVIGIL [Concomitant]
     Indication: FATIGUE

REACTIONS (3)
  - Feeling abnormal [Recovered/Resolved]
  - Gait disturbance [Recovered/Resolved]
  - Product quality issue [Unknown]
